FAERS Safety Report 4752302-7 (Version None)
Quarter: 2005Q3

REPORT INFORMATION
  Report Type: 
  Country: None (occurrence: None)
  Receive Date: 20050825
  Receipt Date: 20050817
  Transmission Date: 20060218
  Serious: Yes (Death, Hospitalization)
  Sender: FDA-Public Use
  Company Number: 20040809421

PATIENT
  Age: 66 Year
  Sex: Female
  Weight: 51.8 kg

DRUGS (12)
  1. ACYCLOVIR [Suspect]
     Dates: end: 20011010
  2. REMICADE [Suspect]
     Indication: CROHN'S DISEASE
     Route: 042
     Dates: start: 20000716
  3. DICLOFENAC [Suspect]
     Dates: end: 20011010
  4. HYOSCYAMINE [Concomitant]
     Indication: CROHN'S DISEASE
     Dates: start: 19990804
  5. HYDROXYZINE [Concomitant]
  6. DARVOCET [Concomitant]
  7. ENTOCORT [Concomitant]
     Dosage: 3MG THREE TIMES PER DAY
     Route: 065
     Dates: start: 20020201
  8. IBUPROFEN [Concomitant]
  9. ELAVIL [Concomitant]
     Dosage: 25MG AT NIGHT
     Route: 065
     Dates: start: 20020101
  10. PURINETHOL [Concomitant]
     Dosage: 50MG PER DAY
     Route: 065
     Dates: start: 20020101
  11. PREDNISONE TAB [Concomitant]
  12. PROPACET 100 [Concomitant]

REACTIONS (24)
  - ABDOMINAL DISTENSION [None]
  - ABDOMINAL PAIN [None]
  - ABDOMINAL PAIN UPPER [None]
  - ABDOMINAL WALL ABSCESS [None]
  - BLOOD UREA INCREASED [None]
  - CARDIO-RESPIRATORY ARREST [None]
  - CELLULITIS [None]
  - CHANGE OF BOWEL HABIT [None]
  - CROHN'S DISEASE [None]
  - DEHYDRATION [None]
  - DIARRHOEA [None]
  - ENTEROCUTANEOUS FISTULA [None]
  - GENERALISED OEDEMA [None]
  - HYPOALBUMINAEMIA [None]
  - ILEUS [None]
  - INTESTINAL OBSTRUCTION [None]
  - LIVER FUNCTION TEST ABNORMAL [None]
  - MALNUTRITION [None]
  - NAUSEA [None]
  - OEDEMA PERIPHERAL [None]
  - SEPSIS [None]
  - SOMNOLENCE [None]
  - VOMITING [None]
  - WHITE BLOOD CELL COUNT INCREASED [None]
